FAERS Safety Report 4369654-2 (Version None)
Quarter: 2004Q2

REPORT INFORMATION
  Report Type: 
  Country: None (occurrence: None)
  Receive Date: 20040527
  Receipt Date: 20040503
  Transmission Date: 20050107
  Serious: Yes (Death)
  Sender: FDA-Public Use
  Company Number: MK200405-0289-1

PATIENT
  Age: 33 Year

DRUGS (1)
  1. METHADOSE [Suspect]
     Dates: start: 20020101

REACTIONS (1)
  - OVERDOSE [None]
